FAERS Safety Report 9990849 (Version 1)
Quarter: 2014Q1

REPORT INFORMATION
  Report Type: Report from Study
  Country: US (occurrence: US)
  Receive Date: 20140310
  Receipt Date: 20140310
  Transmission Date: 20141002
  Serious: No
  Sender: FDA-Public Use
  Company Number: US-ABBVIE-13P-163-1138544-00

PATIENT
  Age: 51 Year
  Sex: Male

DRUGS (26)
  1. HUMIRA [Suspect]
     Indication: PSORIATIC ARTHROPATHY
     Route: 058
  2. METHOTREXATE [Concomitant]
     Indication: PRODUCT USED FOR UNKNOWN INDICATION
  3. OXYCONTIN [Concomitant]
     Indication: MIGRAINE
  4. OXYCODONE [Concomitant]
     Indication: MIGRAINE
  5. VALSARTAN HCT [Concomitant]
     Indication: BLOOD PRESSURE
     Dosage: 160MG.12.5
  6. NORVASC [Concomitant]
     Indication: PRODUCT USED FOR UNKNOWN INDICATION
  7. ACTOS [Concomitant]
     Indication: BLOOD GLUCOSE
  8. ZETIA [Concomitant]
     Indication: BLOOD TRIGLYCERIDES
  9. ZETIA [Concomitant]
     Indication: BLOOD CHOLESTEROL
  10. GLIMIPERIDE [Concomitant]
     Indication: PRODUCT USED FOR UNKNOWN INDICATION
  11. METFORMIN [Concomitant]
     Indication: PRODUCT USED FOR UNKNOWN INDICATION
  12. NEURONTIN [Concomitant]
     Indication: NEUROPATHY PERIPHERAL
  13. NEURONTIN [Concomitant]
     Indication: NERVOUS SYSTEM DISORDER
  14. LOVAZA [Concomitant]
     Indication: BLOOD TRIGLYCERIDES
  15. BUSPIRONE HCL [Concomitant]
     Indication: ANXIETY
  16. BUSPIRONE HCL [Concomitant]
     Indication: BIPOLAR DISORDER
  17. CLARITIN [Concomitant]
     Indication: SEASONAL ALLERGY
  18. NEXIUM [Concomitant]
     Indication: ULCER
     Dosage: IN THE EVENING
  19. LEUCOVORIN CALCIUM [Concomitant]
     Indication: PRODUCT USED FOR UNKNOWN INDICATION
     Dosage: ONE DAY BEFORE AND AFTER METHOTREXATE
  20. FOLIC ACID [Concomitant]
     Indication: PRODUCT USED FOR UNKNOWN INDICATION
  21. IBUPROFEN [Concomitant]
     Indication: PAIN
     Dosage: WITH FOOD OR TUMS
  22. TYLENOL/ACETOMINOPHEN [Concomitant]
     Indication: PAIN
     Dosage: UP TO 3 GRAMS DAILY
  23. FIOROCET TRIPLE ACTION [Concomitant]
     Indication: MIGRAINE
  24. IMITREX [Concomitant]
     Indication: MIGRAINE
  25. FLUTICASONE PROPIONATE [Concomitant]
     Indication: SEASONAL ALLERGY
  26. DIPROPIONATE [Concomitant]
     Indication: PSORIASIS

REACTIONS (15)
  - Cyst [Not Recovered/Not Resolved]
  - Pain in extremity [Not Recovered/Not Resolved]
  - Psoriasis [Not Recovered/Not Resolved]
  - Arthralgia [Not Recovered/Not Resolved]
  - Pyrexia [Recovered/Resolved]
  - Psoriasis [Not Recovered/Not Resolved]
  - Pruritus [Not Recovered/Not Resolved]
  - Sinusitis [Not Recovered/Not Resolved]
  - Nasal congestion [Not Recovered/Not Resolved]
  - Upper-airway cough syndrome [Not Recovered/Not Resolved]
  - Rhinorrhoea [Not Recovered/Not Resolved]
  - Headache [Not Recovered/Not Resolved]
  - Cyst [Not Recovered/Not Resolved]
  - Wrong technique in drug usage process [Unknown]
  - Injection site haemorrhage [Unknown]
